FAERS Safety Report 8026019-X (Version None)
Quarter: 2012Q1

REPORT INFORMATION
  Report Type: 
  Country: None (occurrence: None)
  Receive Date: 20120105
  Receipt Date: 20111013
  Transmission Date: 20120608
  Serious: No
  Sender: FDA-Public Use
  Company Number: US-ABBOTT-11P-163-0864246-00

PATIENT
  Sex: Female

DRUGS (4)
  1. SYNTHROID [Suspect]
     Indication: PRODUCT USED FOR UNKNOWN INDICATION
     Dates: end: 20100101
  2. SYNTHROID [Suspect]
     Dates: start: 20100101
  3. SYNTHROID [Suspect]
     Indication: PRODUCT USED FOR UNKNOWN INDICATION
     Dates: start: 20100101
  4. SYNTHROID [Suspect]
     Dates: start: 20100101, end: 20100101

REACTIONS (4)
  - PANIC ATTACK [None]
  - DRUG EFFECT DECREASED [None]
  - BLOOD PRESSURE INCREASED [None]
  - PALPITATIONS [None]
